FAERS Safety Report 7567075 (Version 2)
Quarter: 2016Q2

REPORT INFORMATION
  Report Type: Spontaneous
  Country: US (occurrence: US)
  Receive Date: 20100830
  Receipt Date: 20160422
  Transmission Date: 20160815
  Serious: No
  Sender: FDA-Public Use
  Company Number: US-PFIZER INC-2010098610

PATIENT
  Age: 46 Year
  Sex: Female
  Weight: 54 kg

DRUGS (5)
  1. ESTRING [Suspect]
     Active Substance: ESTRADIOL
     Indication: ATROPHIC VULVOVAGINITIS
  2. ESTRING [Suspect]
     Active Substance: ESTRADIOL
     Indication: POSTMENOPAUSE
  3. ESTRING [Suspect]
     Active Substance: ESTRADIOL
     Indication: HOT FLUSH
     Dosage: 2 MG, EVERY 3 MONTHS
     Route: 067
     Dates: start: 1998
  4. ESTRING [Suspect]
     Active Substance: ESTRADIOL
     Indication: VULVOVAGINAL DRYNESS
  5. MICONAZOLE NITRATE. [Suspect]
     Active Substance: MICONAZOLE NITRATE
     Indication: VAGINAL INFLAMMATION
     Dosage: UNK

REACTIONS (6)
  - Bowel movement irregularity [Unknown]
  - Drug ineffective [Unknown]
  - Constipation [Unknown]
  - Irritability [Unknown]
  - Bacterial vaginosis [Unknown]
  - Insomnia [Unknown]

NARRATIVE: CASE EVENT DATE: 201007
